FAERS Safety Report 5387630-8 (Version None)
Quarter: 2007Q3

REPORT INFORMATION
  Report Type: 
  Country: None (occurrence: None)
  Receive Date: 20070712
  Receipt Date: 20070712
  Transmission Date: 20080115
  Serious: Yes (Hospitalization)
  Sender: FDA-Public Use
  Company Number: None

PATIENT
  Age: 57 Year
  Sex: Male

DRUGS (3)
  1. AMIODARONE HCL [Suspect]
     Indication: ATRIAL FIBRILLATION
     Dosage: 400MG BID PO
     Route: 048
     Dates: start: 20070625, end: 20070701
  2. AMIODARONE HCL [Suspect]
     Indication: TACHYCARDIA
     Dosage: 400MG BID PO
     Route: 048
     Dates: start: 20070625, end: 20070701
  3. WARFARIN SODIUM [Suspect]
     Dosage: 5MG EVERY DAY PO
     Route: 048
     Dates: start: 20010828

REACTIONS (1)
  - INTERNATIONAL NORMALISED RATIO ABNORMAL [None]
